FAERS Safety Report 9002425 (Version 2)
Quarter: 2013Q1

REPORT INFORMATION
  Report Type: Spontaneous
  Country: FR (occurrence: FR)
  Receive Date: 20130107
  Receipt Date: 20130109
  Transmission Date: 20140127
  Serious: Yes (Other)
  Sender: FDA-Public Use
  Company Number: FR-PFIZER INC-2012284717

PATIENT
  Age: 41 Year
  Sex: Female
  Weight: 80 kg

DRUGS (3)
  1. ZOLOFT [Suspect]
     Indication: DEPRESSION
     Dosage: 75 MG, DAILY IN THE MORNING
     Route: 048
     Dates: start: 20120502
  2. ABILIFY [Concomitant]
     Indication: DELUSIONAL DISORDER, UNSPECIFIED TYPE
     Dosage: 20 MG, 1X/DAY
     Route: 048
     Dates: start: 20120601
  3. LYSANXIA [Concomitant]
     Indication: ANXIETY
     Dosage: 10 MG, 1X/DAY
     Route: 048
     Dates: start: 20120601

REACTIONS (2)
  - Congenital lymphoedema [Not Recovered/Not Resolved]
  - Hyperhidrosis [Unknown]
